FAERS Safety Report 20992967 (Version 1)
Quarter: 2022Q2

REPORT INFORMATION
  Report Type: Spontaneous
  Country: PL (occurrence: PL)
  Receive Date: 20220622
  Receipt Date: 20220622
  Transmission Date: 20220721
  Serious: Yes (Other)
  Sender: FDA-Public Use
  Company Number: PL-AMGEN-POLSP2022091496

PATIENT
  Age: 70 Year
  Sex: Male

DRUGS (5)
  1. OXALIPLATIN [Suspect]
     Active Substance: OXALIPLATIN
     Indication: Rectosigmoid cancer
     Dosage: 85 MILLIGRAM/SQ. METER, Q2WK
     Route: 042
     Dates: start: 20220119
  2. LEUCOVORIN [Suspect]
     Active Substance: LEUCOVORIN
     Indication: Rectosigmoid cancer
     Dosage: 100 MILLIGRAM/SQ. METER, Q2WK
     Route: 042
     Dates: start: 20220119
  3. FLUOROURACIL [Suspect]
     Active Substance: FLUOROURACIL
     Indication: Product used for unknown indication
     Dosage: 600 MILLIGRAM/SQ. METER, Q2WK
     Route: 042
     Dates: start: 20220119
  4. FLUOROURACIL [Suspect]
     Active Substance: FLUOROURACIL
     Indication: Rectosigmoid cancer
     Dosage: 400 MILLIGRAM/SQ. METER, Q2WK
     Route: 040
     Dates: start: 20220119
  5. VECTIBIX [Suspect]
     Active Substance: PANITUMUMAB
     Indication: Rectosigmoid cancer metastatic
     Dosage: 6 MILLIGRAM/KILOGRAM, Q2WK
     Route: 042
     Dates: start: 20220119

REACTIONS (9)
  - Temperature intolerance [Unknown]
  - Hypomagnesaemia [Unknown]
  - Erythema [Unknown]
  - Neurotoxicity [Unknown]
  - Mucosal toxicity [Unknown]
  - Dry skin [Unknown]
  - Skin exfoliation [Unknown]
  - Palmar-plantar erythrodysaesthesia syndrome [Unknown]
  - Gastrointestinal toxicity [Unknown]
